FAERS Safety Report 11344442 (Version 1)
Quarter: 2015Q3

REPORT INFORMATION
  Report Type: Report from Study
  Country: US (occurrence: US)
  Receive Date: 20150806
  Receipt Date: 20150806
  Transmission Date: 20151125
  Serious: Yes (Hospitalization)
  Sender: FDA-Public Use
  Company Number: US-BIOGENIDEC-2015BI106689

PATIENT
  Age: 50 Year
  Sex: Female

DRUGS (1)
  1. TYSABRI [Suspect]
     Active Substance: NATALIZUMAB
     Indication: MULTIPLE SCLEROSIS
     Route: 042
     Dates: start: 20140508

REACTIONS (9)
  - Procedural complication [Recovered/Resolved]
  - Hypophagia [Unknown]
  - Gastric disorder [Recovered/Resolved]
  - Urinary tract infection [Recovered/Resolved]
  - Gastric bypass [Recovered/Resolved]
  - Multiple sclerosis relapse [Recovered/Resolved]
  - Post procedural complication [Recovered/Resolved]
  - Aphasia [Unknown]
  - Hypoaesthesia [Unknown]

NARRATIVE: CASE EVENT DATE: 2015
